FAERS Safety Report 15662221 (Version 2)
Quarter: 2021Q3

REPORT INFORMATION
  Report Type: Report from Study
  Country: US (occurrence: US)
  Receive Date: 20181127
  Receipt Date: 20210803
  Transmission Date: 20211014
  Serious: Yes (Hospitalization, Other)
  Sender: FDA-Public Use
  Company Number: US-SAKK-2018SA320180AA

PATIENT
  Age: 81 Year
  Sex: Female

DRUGS (3)
  1. INSULIN GLARGINE [Suspect]
     Active Substance: INSULIN GLARGINE
     Indication: TYPE 2 DIABETES MELLITUS
     Dosage: 75?90 IU, QD
     Route: 058
  2. INSULIN GLULISINE [Suspect]
     Active Substance: INSULIN GLULISINE
     Indication: TYPE 2 DIABETES MELLITUS
     Dosage: 2 TO 10 UNITS BEFORE MEALS
     Route: 058
  3. INSULIN GLARGINE [Suspect]
     Active Substance: INSULIN GLARGINE
     Dosage: 60 IU, QD
     Route: 058

REACTIONS (15)
  - Chronic obstructive pulmonary disease [Recovered/Resolved]
  - Sternal fracture [Unknown]
  - Balance disorder [Unknown]
  - Limb discomfort [Unknown]
  - Visual impairment [Unknown]
  - Wrist fracture [Unknown]
  - Nervous system disorder [Unknown]
  - Vertigo [Unknown]
  - Dizziness [Unknown]
  - Hypoacusis [Unknown]
  - Blood disorder [Unknown]
  - Musculoskeletal discomfort [Unknown]
  - Gait disturbance [Unknown]
  - Glycosylated haemoglobin increased [Not Recovered/Not Resolved]
  - Road traffic accident [Unknown]
